FAERS Safety Report 5693701-9 (Version None)
Quarter: 2008Q2

REPORT INFORMATION
  Report Type: 
  Country: None (occurrence: None)
  Receive Date: 20080403
  Receipt Date: 20080331
  Transmission Date: 20081010
  Serious: Yes (Hospitalization)
  Sender: FDA-Public Use
  Company Number: US-AVENTIS-200812544GDDC

PATIENT
  Age: 77 Year
  Sex: Male
  Weight: 101 kg

DRUGS (15)
  1. TAXOTERE [Suspect]
     Indication: PROSTATE CANCER
     Route: 042
     Dates: start: 20080229, end: 20080229
  2. DEXAMETHASONE TAB [Suspect]
     Dates: start: 20080229, end: 20080229
  3. PREDNISONE [Suspect]
     Indication: PROSTATE CANCER
     Dosage: DOSE: 110 AS TOTAL DOSE THIS COURSE
     Route: 048
     Dates: start: 20080229, end: 20080310
  4. CODE UNBROKEN [Suspect]
     Indication: PROSTATE CANCER
     Dosage: DOSE: 110 MG AS TOTAL DOSE THIS COURSE
     Route: 048
     Dates: start: 20080229, end: 20080310
  5. LUPRON DEPOT-3 [Concomitant]
  6. LANTUS [Concomitant]
  7. LEVOTHYROXINE SODIUM [Concomitant]
     Dosage: DOSE: 0.88 MCG
  8. CASODEX [Concomitant]
  9. DARVOCET-N [Concomitant]
     Dosage: DOSE: 650 TID
  10. ENALAPRIL MALEATE [Concomitant]
     Dosage: DOSE QUANTITY: 20
  11. ACTOS [Concomitant]
  12. GLIPIZIDE [Concomitant]
     Dosage: DOSE QUANTITY: 10
  13. CYMBALTA [Concomitant]
     Dosage: DOSE QUANTITY: 60
  14. SIMVASTATIN [Concomitant]
     Dosage: DOSE QUANTITY: 20
  15. ASPIRIN [Concomitant]

REACTIONS (5)
  - CONFUSIONAL STATE [None]
  - HYPOTENSION [None]
  - RENAL FAILURE [None]
  - SEPSIS [None]
  - STOMATITIS [None]
